FAERS Safety Report 11457235 (Version 2)
Quarter: 2016Q2

REPORT INFORMATION
  Report Type: Report from Study
  Country: US (occurrence: US)
  Receive Date: 20150904
  Receipt Date: 20160513
  Transmission Date: 20160815
  Serious: Yes (Hospitalization, Other)
  Sender: FDA-Public Use
  Company Number: US-AMGEN-USASP2015089539

PATIENT
  Age: 44 Year
  Sex: Female

DRUGS (2)
  1. LOVENOX [Suspect]
     Active Substance: ENOXAPARIN SODIUM
     Indication: PRODUCT USED FOR UNKNOWN INDICATION
     Dosage: UNK
     Route: 065
  2. ENBREL [Suspect]
     Active Substance: ETANERCEPT
     Indication: PRODUCT USED FOR UNKNOWN INDICATION
     Dosage: UNK
     Route: 065
     Dates: start: 201412

REACTIONS (12)
  - Thrombosis [Unknown]
  - Pain [Unknown]
  - Colon operation [Unknown]
  - Skin discolouration [Unknown]
  - Injection site pain [Unknown]
  - Renal surgery [Unknown]
  - Hospitalisation [Recovered/Resolved]
  - Surgery [Unknown]
  - Polychondritis [Unknown]
  - Diverticulitis [Unknown]
  - Injection site discomfort [Unknown]
  - May-Thurner syndrome [Unknown]

NARRATIVE: CASE EVENT DATE: 2015
